FAERS Safety Report 5680039-9 (Version None)
Quarter: 2008Q1

REPORT INFORMATION
  Report Type: 
  Country: None (occurrence: None)
  Receive Date: 20080325
  Receipt Date: 20080325
  Transmission Date: 20080703
  Serious: Yes (Other)
  Sender: FDA-Public Use
  Company Number: None

PATIENT
  Age: 53 Year
  Sex: Male
  Weight: 133.8111 kg

DRUGS (1)
  1. CYMBALTA [Suspect]
     Indication: NEUROPATHY PERIPHERAL
     Dosage: ONE 60 MG ONE A DAY PO
     Route: 048
     Dates: start: 20070719, end: 20071212

REACTIONS (23)
  - AGGRESSION [None]
  - AGITATION [None]
  - ANXIETY [None]
  - DEPRESSION [None]
  - DYSPNOEA [None]
  - FEELING ABNORMAL [None]
  - ILL-DEFINED DISORDER [None]
  - IMPULSIVE BEHAVIOUR [None]
  - INSOMNIA [None]
  - LIBIDO DECREASED [None]
  - LIBIDO DISORDER [None]
  - LIBIDO INCREASED [None]
  - LOSS OF EMPLOYMENT [None]
  - MALAISE [None]
  - MANIA [None]
  - MEMORY IMPAIRMENT [None]
  - PAINFUL ERECTION [None]
  - PANIC DISORDER [None]
  - PITUITARY TUMOUR [None]
  - SELF ESTEEM DECREASED [None]
  - SLEEP APNOEA SYNDROME [None]
  - SPONTANEOUS PENILE ERECTION [None]
  - WITHDRAWAL SYNDROME [None]
